FAERS Safety Report 25280799 (Version 1)
Quarter: 2025Q2

REPORT INFORMATION
  Report Type: Spontaneous
  Country: US (occurrence: US)
  Receive Date: 20250508
  Receipt Date: 20250508
  Transmission Date: 20250716
  Serious: Yes (Hospitalization, Other)
  Sender: EMCURE PHARMACEUTICALS LTD
  Company Number: US-AVET LIFESCIENCES LTD-2025-AVET-000132

PATIENT
  Age: 69 Year
  Sex: Male

DRUGS (3)
  1. DOXYCYCLINE HYCLATE [Interacting]
     Active Substance: DOXYCYCLINE HYCLATE
     Indication: Pneumonia
     Route: 065
  2. WARFARIN [Interacting]
     Active Substance: WARFARIN
     Indication: Atrial fibrillation
     Route: 065
  3. WARFARIN [Interacting]
     Active Substance: WARFARIN
     Route: 065

REACTIONS (2)
  - Abdominal wall haematoma [Unknown]
  - Drug interaction [Unknown]
